FAERS Safety Report 18702134 (Version 1)
Quarter: 2021Q1

REPORT INFORMATION
  Report Type: Spontaneous
  Country: US (occurrence: US)
  Receive Date: 20210105
  Receipt Date: 20210105
  Transmission Date: 20210419
  Serious: Yes (Hospitalization, Other)
  Sender: FDA-Public Use
  Company Number: US-ENDO PHARMACEUTICALS INC-2020-008125

PATIENT
  Sex: Female

DRUGS (2)
  1. XIAFLEX [Suspect]
     Active Substance: COLLAGENASE CLOSTRIDIUM HISTOLYTICUM
     Indication: DUPUYTREN^S CONTRACTURE
     Dosage: UNK UNKNOWN, UNKNOWN; FIRST INJECTION
     Route: 026
     Dates: start: 20201105
  2. XIAFLEX [Suspect]
     Active Substance: COLLAGENASE CLOSTRIDIUM HISTOLYTICUM
     Dosage: UNK UNKNOWN, UNKNOWN; SECOND INJECTION
     Route: 026
     Dates: start: 202011

REACTIONS (3)
  - COVID-19 [Unknown]
  - Fall [Recovering/Resolving]
  - Upper limb fracture [Recovering/Resolving]

NARRATIVE: CASE EVENT DATE: 2020
